FAERS Safety Report 25582715 (Version 1)
Quarter: 2025Q3

REPORT INFORMATION
  Report Type: Spontaneous
  Country: EU (occurrence: EU)
  Receive Date: 20250720
  Receipt Date: 20250720
  Transmission Date: 20251021
  Serious: Yes (Hospitalization, Other)
  Sender: BRISTOL-MYERS SQUIBB COMPANY
  Company Number: EU-BRISTOL-MYERS SQUIBB COMPANY-2025-100368

PATIENT
  Age: 41 Year
  Sex: Male

DRUGS (4)
  1. NIVOLUMAB [Suspect]
     Active Substance: NIVOLUMAB
     Indication: Malignant melanoma
     Dates: start: 20230309
  2. NIVOLUMAB [Suspect]
     Active Substance: NIVOLUMAB
     Dates: start: 20230407
  3. NELVUTAMIG [Suspect]
     Active Substance: NELVUTAMIG
     Indication: Malignant melanoma
     Dates: start: 20230309
  4. NELVUTAMIG [Suspect]
     Active Substance: NELVUTAMIG
     Dates: start: 20230407

REACTIONS (4)
  - Influenza [Recovering/Resolving]
  - Hepatotoxicity [Recovering/Resolving]
  - Gastrointestinal motility disorder [Recovering/Resolving]
  - C-reactive protein increased [Recovering/Resolving]
